FAERS Safety Report 8381144-9 (Version None)
Quarter: 2012Q2

REPORT INFORMATION
  Report Type: 
  Country: None (occurrence: None)
  Receive Date: 20120523
  Receipt Date: 20120515
  Transmission Date: 20120825
  Serious: Yes (Other)
  Sender: FDA-Public Use
  Company Number: PHEH2012US010210

PATIENT
  Sex: Female
  Weight: 63.039 kg

DRUGS (1)
  1. GLEEVEC [Suspect]
     Indication: GASTROINTESTINAL STROMAL TUMOUR
     Dosage: UNK
     Dates: start: 20070101, end: 20081001

REACTIONS (2)
  - GASTRIC CANCER [None]
  - HEPATIC NEOPLASM [None]
